FAERS Safety Report 5775716-5 (Version None)
Quarter: 2008Q2

REPORT INFORMATION
  Report Type: 
  Country: None (occurrence: None)
  Receive Date: 20080617
  Receipt Date: 20080609
  Transmission Date: 20081010
  Serious: Yes (Hospitalization, Other)
  Sender: FDA-Public Use
  Company Number: US-PFIZER INC-2006051227

PATIENT
  Sex: Male
  Weight: 179.2 kg

DRUGS (6)
  1. CELEBREX [Suspect]
     Indication: PAIN
  2. CELEBREX [Suspect]
     Indication: INFLAMMATION
  3. CELEBREX [Suspect]
     Indication: ARTHRITIS
  4. BEXTRA [Suspect]
     Indication: PAIN
  5. BEXTRA [Suspect]
     Indication: INFLAMMATION
  6. BEXTRA [Suspect]
     Indication: ARTHRITIS

REACTIONS (3)
  - AMNESIA [None]
  - CEREBROVASCULAR ACCIDENT [None]
  - MARFAN'S SYNDROME [None]
